FAERS Safety Report 10059520 (Version 1)
Quarter: 2014Q2

REPORT INFORMATION
  Report Type: Spontaneous
  Country: BR (occurrence: BR)
  Receive Date: 20140404
  Receipt Date: 20140404
  Transmission Date: 20141212
  Serious: Yes (Death)
  Sender: FDA-Public Use
  Company Number: BR-ASTRAZENECA-2014SE22681

PATIENT
  Age: 18455 Day
  Sex: Female

DRUGS (6)
  1. FELODIPINE [Suspect]
     Route: 048
     Dates: start: 20130301
  2. BRILINTA [Suspect]
     Indication: CARDIOVASCULAR EVENT PROPHYLAXIS
     Route: 048
     Dates: start: 20130301
  3. SIMVASTATIN [Concomitant]
     Route: 048
  4. VASTAREL [Concomitant]
     Route: 048
  5. CARVEDILOL [Concomitant]
     Route: 048
  6. ASA [Concomitant]
     Route: 048

REACTIONS (1)
  - Acute myocardial infarction [Fatal]
